FAERS Safety Report 7183025-5 (Version None)
Quarter: 2010Q4

REPORT INFORMATION
  Report Type: 
  Country: None (occurrence: None)
  Receive Date: 20101222
  Receipt Date: 20101215
  Transmission Date: 20110411
  Serious: No
  Sender: FDA-Public Use
  Company Number: US-PFIZER INC-2010175862

PATIENT
  Age: 47 Year
  Sex: Female

DRUGS (1)
  1. ADVIL CONGESTION RELIEF [Suspect]
     Indication: NASOPHARYNGITIS
     Dosage: 1 DF (TABLET) EVERY 6 HOURS
     Route: 048
     Dates: start: 20101213

REACTIONS (2)
  - DRUG INEFFECTIVE [None]
  - DRY MOUTH [None]
